FAERS Safety Report 9462233 (Version 1)
Quarter: 2013Q3

REPORT INFORMATION
  Report Type: Spontaneous
  Country: US (occurrence: None)
  Receive Date: 20130813
  Receipt Date: 20130813
  Transmission Date: 20140515
  Serious: Yes (Hospitalization)
  Sender: FDA-Public Use
  Company Number: KAD201308-000971

PATIENT
  Sex: 0

DRUGS (2)
  1. INTERFERON ALFACON-1 [Suspect]
     Indication: CHRONIC HEPATITIS C
  2. RIBAVIRIN [Suspect]
     Indication: CHRONIC HEPATITIS C

REACTIONS (1)
  - Psychotic disorder [None]
